FAERS Safety Report 9536101 (Version 1)
Quarter: 2013Q2

REPORT INFORMATION
  Report Type: Spontaneous
  Country: US (occurrence: None)
  Receive Date: 20130517
  Receipt Date: 20130517
  Transmission Date: 20140414
  Serious: Yes (Other)
  Sender: FDA-Public Use
  Company Number: 1000042266

PATIENT
  Age: 82 Year
  Sex: 0

DRUGS (4)
  1. VIIBRYD (VILAZODONE HYDROCHLORIDE) (10 MILLIGRAM, TABLETS) [Suspect]
     Indication: AFFECTIVE DISORDER
     Dosage: 10MG (10 MG, 1 IN 1 D),ORAL
     Route: 048
     Dates: start: 20130119, end: 20130124
  2. VIIBRYD (VILAZODONE HYDROCHLORIDE) (10 MILLIGRAM, TABLETS) [Suspect]
     Indication: ANXIETY
     Dosage: 10MG (10 MG, 1 IN 1 D),ORAL
     Route: 048
     Dates: start: 20130119, end: 20130124
  3. SIMVASTATIN [Suspect]
  4. LISINOPRIL [Concomitant]

REACTIONS (3)
  - Insomnia [None]
  - Headache [None]
  - Off label use [None]
